FAERS Safety Report 20083328 (Version 1)
Quarter: 2021Q4

REPORT INFORMATION
  Report Type: Spontaneous
  Country: FR (occurrence: FR)
  Receive Date: 20211117
  Receipt Date: 20211117
  Transmission Date: 20220303
  Serious: Yes (Hospitalization)
  Sender: FDA-Public Use
  Company Number: None

PATIENT
  Age: 70 Year
  Sex: Male
  Weight: 85 kg

DRUGS (2)
  1. AMIODARONE [Suspect]
     Active Substance: AMIODARONE
     Indication: Atrial fibrillation
     Dosage: 400 MILLIGRAM, QD
     Route: 048
     Dates: start: 20210727
  2. IMBRUVICA [Suspect]
     Active Substance: IBRUTINIB
     Indication: Myeloproliferative neoplasm
     Dosage: 420 MG/JOUR PUIS 280 MG/JOUR
     Route: 048
     Dates: end: 20210820

REACTIONS (1)
  - Ischaemic stroke [Recovering/Resolving]

NARRATIVE: CASE EVENT DATE: 20210820
